FAERS Safety Report 24318393 (Version 1)
Quarter: 2024Q3

REPORT INFORMATION
  Report Type: Spontaneous
  Country: US (occurrence: None)
  Receive Date: 20240913
  Receipt Date: 20240913
  Transmission Date: 20241017
  Serious: Yes (Other)
  Sender: Public
  Company Number: None

PATIENT
  Age: 66 Year
  Sex: Female
  Weight: 68 kg

DRUGS (2)
  1. HIZENTRA [Suspect]
     Active Substance: HUMAN IMMUNOGLOBULIN G
     Dosage: 16 G GRAM (S) WEEKLY SUBCUTANEOUS?
     Route: 058
     Dates: start: 20231213
  2. HIZENTRA [Suspect]
     Active Substance: HUMAN IMMUNOGLOBULIN G
     Dosage: 12 G GRAM(S) WEEKLY SUBCUTANEOUS
     Route: 058

REACTIONS (2)
  - Chest discomfort [None]
  - Cough [None]

NARRATIVE: CASE EVENT DATE: 20240425
